FAERS Safety Report 7001636-4 (Version None)
Quarter: 2010Q3

REPORT INFORMATION
  Report Type: 
  Country: None (occurrence: None)
  Receive Date: 20100916
  Receipt Date: 20100907
  Transmission Date: 20110219
  Serious: Yes (Other)
  Sender: FDA-Public Use
  Company Number: 2010SP002400

PATIENT
  Age: 17 Year
  Sex: Female
  Weight: 44 kg

DRUGS (6)
  1. CICLESONIDE HFA (160 UG) [Suspect]
     Indication: RHINITIS ALLERGIC
     Dosage: 160 UG; QD; INHALATION, 160 UG; QD; INHALATION
     Route: 055
     Dates: start: 20100420, end: 20100821
  2. CICLESONIDE HFA (160 UG) [Suspect]
     Indication: RHINITIS ALLERGIC
     Dosage: 160 UG; QD; INHALATION, 160 UG; QD; INHALATION
     Route: 055
     Dates: start: 20100825
  3. SPRINTEC [Concomitant]
  4. TYLENOL-500 [Concomitant]
  5. ZYRTEC [Concomitant]
  6. CLARITIN [Concomitant]

REACTIONS (1)
  - PYELONEPHRITIS ACUTE [None]
